FAERS Safety Report 4441079-0 (Version None)
Quarter: 2004Q3

REPORT INFORMATION
  Report Type: 
  Country: None (occurrence: None)
  Receive Date: 20040827
  Receipt Date: 20031019
  Transmission Date: 20050211
  Serious: Yes (Hospitalization)
  Sender: FDA-Public Use
  Company Number: 03-0087

PATIENT
  Age: 80 Year
  Sex: Male

DRUGS (1)
  1. SULAR [Suspect]
     Dosage: PO
     Route: 048

REACTIONS (1)
  - SYNCOPE [None]
